FAERS Safety Report 24428978 (Version 2)
Quarter: 2024Q4

REPORT INFORMATION
  Report Type: Spontaneous
  Country: JP (occurrence: JP)
  Receive Date: 20241011
  Receipt Date: 20241119
  Transmission Date: 20250115
  Serious: Yes (Other)
  Sender: UCB
  Company Number: JP-UCBJ-CD202409414UCBPHAPROD

PATIENT
  Age: 7 Decade
  Sex: Female

DRUGS (1)
  1. VIMPAT [Suspect]
     Active Substance: LACOSAMIDE
     Indication: Epilepsy
     Dosage: UNK
     Route: 048

REACTIONS (2)
  - Delirium [Recovering/Resolving]
  - Hallucination, visual [Unknown]
